FAERS Safety Report 14120574 (Version 2)
Quarter: 2018Q4

REPORT INFORMATION
  Report Type: Report from Study
  Country: AU (occurrence: AU)
  Receive Date: 20171024
  Receipt Date: 20181029
  Transmission Date: 20190204
  Serious: Yes (Other)
  Sender: FDA-Public Use
  Company Number: AU-TOLMAR, INC.-2017AU014303

PATIENT
  Sex: Male

DRUGS (1)
  1. ELIGARD [Suspect]
     Active Substance: LEUPROLIDE ACETATE
     Indication: PROSTATE CANCER
     Dosage: 45 MG,  EVERY 6 MONTHS
     Route: 058
     Dates: start: 20151021

REACTIONS (4)
  - Bladder catheterisation [Unknown]
  - Anal incontinence [Unknown]
  - Urinary incontinence [Unknown]
  - Urinary retention [Unknown]
